FAERS Safety Report 5404886-3 (Version None)
Quarter: 2007Q3

REPORT INFORMATION
  Report Type: 
  Country: None (occurrence: None)
  Receive Date: 20070803
  Receipt Date: 20070727
  Transmission Date: 20080115
  Serious: Yes (Other)
  Sender: FDA-Public Use
  Company Number: PHNU2007DE02671

PATIENT
  Age: 79 Year
  Sex: Female

DRUGS (1)
  1. ZOMETA [Suspect]
     Indication: MULTIPLE MYELOMA
     Route: 042
     Dates: start: 20040101, end: 20060901

REACTIONS (11)
  - BREATH ODOUR [None]
  - GINGIVAL DISORDER [None]
  - IMPAIRED HEALING [None]
  - JAW OPERATION [None]
  - ORAL PAIN [None]
  - OSTEONECROSIS [None]
  - PERIODONTITIS [None]
  - PRIMARY SEQUESTRUM [None]
  - TOOTH EXTRACTION [None]
  - TOOTH LOSS [None]
  - WOUND TREATMENT [None]
